FAERS Safety Report 24575451 (Version 2)
Quarter: 2024Q4

REPORT INFORMATION
  Report Type: Spontaneous
  Country: US (occurrence: US)
  Receive Date: 20241104
  Receipt Date: 20241105
  Transmission Date: 20250115
  Serious: No
  Sender: CALLIDITAS THERAPEUTICS AB
  Company Number: US-Calliditas-2024CAL01557

PATIENT
  Age: 41 Year
  Sex: Female

DRUGS (9)
  1. TARPEYO [Suspect]
     Active Substance: BUDESONIDE
     Indication: IgA nephropathy
     Route: 048
     Dates: start: 20240603
  2. AMLODIPINE [Concomitant]
     Active Substance: AMLODIPINE BESYLATE
     Dosage: INCREASED FROM 5 MG TO 10 MG
  3. LABETALOL [Concomitant]
     Active Substance: LABETALOL
     Dosage: INCREASED FROM 5 MG TO 10 MG
  4. IRBESARTAN [Concomitant]
     Active Substance: IRBESARTAN
     Dosage: INCREASED FROM 5 MG TO 10 MG
  5. THYROXINE [Concomitant]
     Active Substance: LEVOTHYROXINE
     Dosage: INCREASED FROM 5 MG TO 10 MG
  6. ATORVASTATIN [Concomitant]
     Active Substance: ATORVASTATIN
     Dosage: INCREASED FROM 5 MG TO 10 MG
  7. FISH OIL [Concomitant]
     Active Substance: FISH OIL
     Dosage: INCREASED FROM 5 MG TO 10 MG
  8. RIFAMPIN [Concomitant]
     Active Substance: RIFAMPIN
     Dosage: INCREASED FROM 5 MG TO 10 MG
  9. VITAMIN D3 [Concomitant]
     Active Substance: CHOLECALCIFEROL
     Dosage: INCREASED FROM 5 MG TO 10 MG

REACTIONS (7)
  - Fluid retention [Recovering/Resolving]
  - Blood pressure increased [Recovering/Resolving]
  - Polymenorrhoea [Not Recovered/Not Resolved]
  - Dysmenorrhoea [Not Recovered/Not Resolved]
  - Menstrual clots [Not Recovered/Not Resolved]
  - Heavy menstrual bleeding [Not Recovered/Not Resolved]
  - Muscle spasms [Unknown]

NARRATIVE: CASE EVENT DATE: 20240801
